FAERS Safety Report 16487159 (Version 1)
Quarter: 2019Q3

REPORT INFORMATION
  Report Type: Spontaneous
  Country: US (occurrence: US)
  Receive Date: 20190626
  Receipt Date: 20190626
  Transmission Date: 20191004
  Serious: Yes (Hospitalization)
  Sender: FDA-Public Use
  Company Number: None

PATIENT
  Age: 93 Year
  Sex: Female

DRUGS (15)
  1. HALOBETASOL [Concomitant]
     Active Substance: HALOBETASOL PROPIONATE
  2. PANTOPRAZOLE [Concomitant]
     Active Substance: PANTOPRAZOLE
  3. COLLAGENASE SANTYL [Concomitant]
     Active Substance: COLLAGENASE CLOSTRIDIUM HISTOLYTICUM
  4. STELARA [Suspect]
     Active Substance: USTEKINUMAB
     Dosage: ?          OTHER FREQUENCY:EVERY 12 WEEKS;?
     Route: 058
     Dates: start: 20170104
  5. CEPHALEXIN. [Concomitant]
     Active Substance: CEPHALEXIN
  6. METOPROLOL. [Concomitant]
     Active Substance: METOPROLOL
  7. ASPIRIN. [Concomitant]
     Active Substance: ASPIRIN
  8. CLOBEX [Concomitant]
     Active Substance: CLOBETASOL PROPIONATE
  9. HUMIRA [Concomitant]
     Active Substance: ADALIMUMAB
  10. PREDNISONE. [Concomitant]
     Active Substance: PREDNISONE
  11. SIMVASTATIN. [Concomitant]
     Active Substance: SIMVASTATIN
  12. CLOPIDOGREL [Concomitant]
     Active Substance: CLOPIDOGREL BISULFATE
  13. MAGNESIUM [Concomitant]
     Active Substance: MAGNESIUM
  14. TRELEGY ELLIPTA [Concomitant]
     Active Substance: FLUTICASONE FUROATE\UMECLIDINIUM BROMIDE\VILANTEROL TRIFENATATE
  15. VITAMIN E [Concomitant]
     Active Substance: .ALPHA.-TOCOPHEROL

REACTIONS (2)
  - Hospitalisation [None]
  - Therapy cessation [None]

NARRATIVE: CASE EVENT DATE: 20190625
